FAERS Safety Report 5408239-3 (Version None)
Quarter: 2007Q3

REPORT INFORMATION
  Report Type: 
  Country: None (occurrence: None)
  Receive Date: 20070808
  Receipt Date: 20070806
  Transmission Date: 20080115
  Serious: Yes (Hospitalization, Disabling)
  Sender: FDA-Public Use
  Company Number: JP-BRISTOL-MYERS SQUIBB COMPANY-13714514

PATIENT
  Age: 51 Year
  Sex: Male

DRUGS (2)
  1. TAXOL [Suspect]
     Indication: GASTRIC CANCER
     Route: 041
     Dates: start: 20070226, end: 20070226
  2. TS-1 [Suspect]
     Indication: GASTRIC CANCER
     Route: 048
     Dates: start: 20070225, end: 20070225

REACTIONS (2)
  - HYDRONEPHROSIS [None]
  - RENAL HAEMORRHAGE [None]
